FAERS Safety Report 5046278-5 (Version None)
Quarter: 2006Q2

REPORT INFORMATION
  Report Type: 
  Country: None (occurrence: None)
  Receive Date: 20060629
  Receipt Date: 20060615
  Transmission Date: 20061013
  Serious: Yes (Disabling)
  Sender: FDA-Public Use
  Company Number: 2006056460

PATIENT
  Age: 64 Year
  Sex: Male
  Weight: 94.4 kg

DRUGS (10)
  1. SUTENT [Suspect]
     Indication: PROSTATE CANCER
     Dosage: 37.5 MG (37.5 MG, ONCE DAILY FOR 14 DAYS), ORAL
     Route: 048
     Dates: start: 20060201, end: 20060418
  2. TAXOTERE [Suspect]
     Indication: PROSTATE CANCER
     Dosage: 126. MG (60 MG/M*S, 1 IN 3 WK), INTRAVENOUS
     Route: 042
     Dates: start: 20060315
  3. ATENOLOL [Concomitant]
  4. PREDNISONE TAB [Concomitant]
  5. LISINOPRIL [Concomitant]
  6. ESOMEPRAZOLE (ESOMEPRAZOLE) [Concomitant]
  7. ONDANSETRON [Concomitant]
  8. ASPIRIN [Concomitant]
  9. ACTONEL [Concomitant]
  10. DECADRON [Concomitant]

REACTIONS (3)
  - HYPOAESTHESIA [None]
  - HYPOAESTHESIA ORAL [None]
  - OPHTHALMOPLEGIA [None]
